FAERS Safety Report 4855794-8 (Version None)
Quarter: 2005Q4

REPORT INFORMATION
  Report Type: 
  Country: None (occurrence: None)
  Receive Date: 20051216
  Receipt Date: 20051207
  Transmission Date: 20060501
  Serious: Yes (Hospitalization)
  Sender: FDA-Public Use
  Company Number: US-MERCK-0512USA00910

PATIENT
  Age: 74 Year
  Sex: Female

DRUGS (6)
  1. FOSAMAX [Suspect]
     Indication: OSTEOPOROSIS
     Route: 048
     Dates: start: 20050601, end: 20051204
  2. ATACAND [Concomitant]
     Route: 065
  3. LABETALOL HYDROCHLORIDE [Concomitant]
     Route: 065
  4. AFEDITAB CR [Concomitant]
     Route: 065
  5. HYDRODIURIL [Concomitant]
     Route: 048
  6. ZETIA [Concomitant]
     Route: 048
     Dates: start: 20031201

REACTIONS (1)
  - CHEST PAIN [None]
